FAERS Safety Report 7934673-3 (Version None)
Quarter: 2011Q4

REPORT INFORMATION
  Report Type: 
  Country: None (occurrence: None)
  Receive Date: 20111122
  Receipt Date: 20111115
  Transmission Date: 20120403
  Serious: Yes (Hospitalization, Disabling, Other)
  Sender: FDA-Public Use
  Company Number: US-MERCK-1107USA03587

PATIENT
  Age: 56 Year
  Sex: Female
  Weight: 63 kg

DRUGS (5)
  1. FOSAMAX [Suspect]
     Indication: OSTEOPENIA
     Route: 048
     Dates: start: 20040119, end: 20070301
  2. BONIVA [Suspect]
     Indication: OSTEOPENIA
     Route: 048
     Dates: start: 20070913, end: 20080925
  3. BETAMETHASONE VALERATE [Concomitant]
     Indication: PSORIASIS
     Route: 061
     Dates: start: 20030106
  4. PREMPRO [Concomitant]
     Route: 065
  5. RENOVA [Concomitant]
     Indication: SKIN DISORDER
     Route: 061
     Dates: start: 20030106

REACTIONS (35)
  - BONE LESION [None]
  - HAEMATURIA [None]
  - DENTAL PLAQUE [None]
  - UTERINE MALPOSITION [None]
  - POOR PERSONAL HYGIENE [None]
  - OSTEOSCLEROSIS [None]
  - COLONIC POLYP [None]
  - GINGIVAL RECESSION [None]
  - VITAMIN D DECREASED [None]
  - TOOTH FRACTURE [None]
  - TONGUE COATED [None]
  - OSTEONECROSIS OF JAW [None]
  - ANKLE FRACTURE [None]
  - BONE DISORDER [None]
  - GRANULOMATOUS LIVER DISEASE [None]
  - REFLUX LARYNGITIS [None]
  - UPPER RESPIRATORY TRACT INFECTION [None]
  - SINUSITIS [None]
  - UPPER-AIRWAY COUGH SYNDROME [None]
  - OSTEONECROSIS [None]
  - SALIVARY GLAND CALCULUS [None]
  - GLOSSODYNIA [None]
  - RHINITIS ALLERGIC [None]
  - CALCULUS URETERIC [None]
  - URINARY TRACT INFECTION [None]
  - ANXIETY [None]
  - EXOSTOSIS [None]
  - ENDOMETRIAL ATROPHY [None]
  - LARYNGEAL OEDEMA [None]
  - LOW DENSITY LIPOPROTEIN INCREASED [None]
  - UTERINE LEIOMYOMA [None]
  - RENAL CYST [None]
  - BONE LOSS [None]
  - OVARIAN CYST [None]
  - NASAL SEPTUM DEVIATION [None]
